FAERS Safety Report 6878291-7 (Version None)
Quarter: 2010Q3

REPORT INFORMATION
  Report Type: 
  Country: None (occurrence: None)
  Receive Date: 20100728
  Receipt Date: 20100716
  Transmission Date: 20110219
  Serious: Yes (Other)
  Sender: FDA-Public Use
  Company Number: US-PFIZER INC-2010089379

PATIENT
  Sex: Female
  Weight: 59 kg

DRUGS (5)
  1. HALCION [Suspect]
     Indication: INSOMNIA
     Dosage: 0.125 MG, DAILY
     Dates: end: 20100708
  2. VERAPAMIL [Concomitant]
     Indication: HYPERTENSION
     Dosage: UNK
  3. BENADRYL [Concomitant]
     Indication: HYPERSENSITIVITY
     Dosage: UNK
  4. ACETYLSALICYLIC ACID [Concomitant]
     Indication: PROPHYLAXIS
     Dosage: UNK
  5. PREMARIN [Concomitant]
     Dosage: UNK

REACTIONS (4)
  - AMNESIA [None]
  - APHASIA [None]
  - HEAD DISCOMFORT [None]
  - RASH [None]
